FAERS Safety Report 10812425 (Version 1)
Quarter: 2015Q1

REPORT INFORMATION
  Report Type: Spontaneous
  Country: US (occurrence: None)
  Receive Date: 20150213
  Receipt Date: 20150213
  Transmission Date: 20150721
  Serious: Yes (Other)
  Sender: FDA-Public Use
  Company Number: None

PATIENT
  Age: 50 Year
  Sex: Male

DRUGS (10)
  1. POTASSIUM [Concomitant]
     Active Substance: POTASSIUM
  2. DULOXETINE [Concomitant]
     Active Substance: DULOXETINE
  3. OXYCODONE [Suspect]
     Active Substance: OXYCODONE
     Indication: PAIN
     Dosage: 1 TO 2 TABLETS EVERY 3 HOURS ORAL
     Route: 048
     Dates: start: 20150206, end: 20150210
  4. HYDROCODONE/APAP [Concomitant]
     Active Substance: ACETAMINOPHEN\HYDROCODONE
  5. IBUPROFEN. [Concomitant]
     Active Substance: IBUPROFEN
  6. QUETIAPINE [Concomitant]
     Active Substance: QUETIAPINE
  7. DEPO-TESTOSTERONE [Concomitant]
     Active Substance: TESTOSTERONE CYPIONATE
  8. MIXED AMPHETAMINE SALTS [Concomitant]
     Active Substance: AMPHETAMINE ASPARTATE\AMPHETAMINE SULFATE\DEXTROAMPHETAMINE SACCHARATE\DEXTROAMPHETAMINE SULFATE
  9. LIDOCAINE. [Concomitant]
     Active Substance: LIDOCAINE
  10. DIAZEPAM. [Concomitant]
     Active Substance: DIAZEPAM

REACTIONS (5)
  - Drug effect decreased [None]
  - Product substitution issue [None]
  - Product formulation issue [None]
  - Product quality issue [None]
  - Withdrawal syndrome [None]

NARRATIVE: CASE EVENT DATE: 20150210
